FAERS Safety Report 9944276 (Version 1)
Quarter: 2014Q1

REPORT INFORMATION
  Report Type: Report from Study
  Country: US (occurrence: US)
  Receive Date: 20140303
  Receipt Date: 20140303
  Transmission Date: 20141002
  Serious: No
  Sender: FDA-Public Use
  Company Number: US-ABBVIE-13P-163-1052055-00

PATIENT
  Age: 54 Year
  Sex: Male
  Weight: 107.14 kg

DRUGS (4)
  1. HUMIRA [Suspect]
     Indication: PSORIATIC ARTHROPATHY
     Dates: start: 20130115, end: 20130115
  2. HUMIRA [Suspect]
     Indication: PSORIASIS
     Dates: start: 20130129
  3. IBUPROFEN [Concomitant]
     Indication: PAIN
  4. TYLENOL [Concomitant]
     Indication: PAIN

REACTIONS (1)
  - Injection site bruising [Not Recovered/Not Resolved]
